FAERS Safety Report 4391477-9 (Version None)
Quarter: 2004Q3

REPORT INFORMATION
  Report Type: 
  Country: None (occurrence: None)
  Receive Date: 20040707
  Receipt Date: 20040628
  Transmission Date: 20050211
  Serious: Yes (Hospitalization)
  Sender: FDA-Public Use
  Company Number: DE-GLAXOSMITHKLINE-D0044072A

PATIENT
  Age: 67 Year
  Sex: Female

DRUGS (5)
  1. LAMICTAL [Suspect]
     Dosage: 75MG PER DAY
     Route: 048
     Dates: start: 20040213, end: 20040307
  2. QUILONUM RETARD [Concomitant]
     Dosage: .5TAB PER DAY
     Route: 048
     Dates: start: 20040401
  3. ZYPREXA [Concomitant]
     Dosage: 10MG PER DAY
     Route: 048
     Dates: start: 20040213
  4. ANAFRANIL [Concomitant]
     Dosage: 25MG SEVEN TIMES PER DAY
     Route: 048
     Dates: start: 20040303
  5. BELOC-ZOK [Concomitant]
     Dosage: .5TAB PER DAY
     Route: 048
     Dates: start: 20030312

REACTIONS (8)
  - DEPRESSION [None]
  - DRUG ERUPTION [None]
  - ERYTHEMA [None]
  - MUCOSAL EROSION [None]
  - ORAL PRURITUS [None]
  - PRURITUS [None]
  - PYREXIA [None]
  - RASH MACULO-PAPULAR [None]
